FAERS Safety Report 5464578-1 (Version None)
Quarter: 2007Q3

REPORT INFORMATION
  Report Type: 
  Country: None (occurrence: None)
  Receive Date: 20070921
  Receipt Date: 20070911
  Transmission Date: 20080115
  Serious: Yes (Hospitalization, Other)
  Sender: FDA-Public Use
  Company Number: US-AMGEN-QUU242925

PATIENT
  Sex: Male

DRUGS (1)
  1. ENBREL [Suspect]
     Indication: RHEUMATOID ARTHRITIS
     Route: 058
     Dates: start: 20030801

REACTIONS (4)
  - ERYTHEMA INFECTIOSUM [None]
  - INTRACRANIAL ANEURYSM [None]
  - MENIERE'S DISEASE [None]
  - PLATELET COUNT DECREASED [None]
